FAERS Safety Report 14338067 (Version 1)
Quarter: 2017Q4

REPORT INFORMATION
  Report Type: Spontaneous
  Country: US (occurrence: US)
  Receive Date: 20171229
  Receipt Date: 20171229
  Transmission Date: 20180321
  Serious: No
  Sender: FDA-Public Use
  Company Number: US-BAYER-2017-250521

PATIENT
  Age: 10 Year
  Sex: Male

DRUGS (4)
  1. CLARITIN [Suspect]
     Active Substance: LORATADINE
     Indication: SEASONAL ALLERGY
     Dosage: UNK
     Dates: start: 20171226
  2. CLARITIN [Suspect]
     Active Substance: LORATADINE
     Indication: MULTIPLE ALLERGIES
  3. METHYLPHENIDATE. [Concomitant]
     Active Substance: METHYLPHENIDATE
     Dosage: 20 MG, UNK
  4. CLARITIN [Suspect]
     Active Substance: LORATADINE
     Indication: RESPIRATORY DISORDER
     Dosage: 8 DF, UNK
     Route: 048
     Dates: start: 20171227, end: 20171227

REACTIONS (3)
  - Accidental exposure to product by child [Recovered/Resolved]
  - Drug ineffective [Unknown]
  - Decreased activity [Unknown]

NARRATIVE: CASE EVENT DATE: 20171227
